FAERS Safety Report 12829766 (Version 1)
Quarter: 2016Q4

REPORT INFORMATION
  Report Type: Spontaneous
  Country: US (occurrence: US)
  Receive Date: 20161007
  Receipt Date: 20161007
  Transmission Date: 20170207
  Serious: No
  Sender: FDA-Public Use
  Company Number: US-SA-2016SA113651

PATIENT
  Age: 49 Year
  Sex: Female

DRUGS (5)
  1. AUBAGIO [Suspect]
     Active Substance: TERIFLUNOMIDE
     Indication: MULTIPLE SCLEROSIS
     Route: 065
     Dates: start: 20160422
  2. OXYCODONE [Concomitant]
     Active Substance: OXYCODONE
     Dosage: 30  MG
  3. AMPHETAMINE/DEXTROAMPHETAMINE [Concomitant]
     Dosage: 20 MG
  4. DIAZEPAM. [Concomitant]
     Active Substance: DIAZEPAM
     Dosage: 10 MG
  5. CARISOPRODOL. [Concomitant]
     Active Substance: CARISOPRODOL
     Dosage: 350 MG

REACTIONS (1)
  - Headache [Not Recovered/Not Resolved]
